FAERS Safety Report 12698671 (Version 1)
Quarter: 2016Q3

REPORT INFORMATION
  Report Type: Spontaneous
  Country: DE (occurrence: DE)
  Receive Date: 20160830
  Receipt Date: 20160830
  Transmission Date: 20161109
  Serious: Yes (Hospitalization)
  Sender: FDA-Public Use
  Company Number: DE-ASTRAZENECA-2016SE90654

PATIENT
  Age: 75 Year
  Sex: Male

DRUGS (3)
  1. APOMORPHIN [Concomitant]
     Active Substance: APOMORPHINE HYDROCHLORIDE
  2. SEROQUEL [Suspect]
     Active Substance: QUETIAPINE FUMARATE
     Indication: HALLUCINATION, VISUAL
     Route: 048
  3. MADOPAR [Concomitant]
     Active Substance: BENSERAZIDE HYDROCHLORIDE\LEVODOPA

REACTIONS (11)
  - Injury [Unknown]
  - Somnolence [Unknown]
  - Product use issue [Unknown]
  - Off label use [Unknown]
  - Hypotension [Unknown]
  - Hypotonia [Unknown]
  - Muscle spasms [Unknown]
  - Syncope [Unknown]
  - Dizziness [Unknown]
  - Weight decreased [Unknown]
  - Fall [Unknown]
